FAERS Safety Report 5794951-3 (Version None)
Quarter: 2008Q2

REPORT INFORMATION
  Report Type: 
  Country: None (occurrence: None)
  Receive Date: 20080630
  Receipt Date: 20080617
  Transmission Date: 20081010
  Serious: Yes (Other)
  Sender: FDA-Public Use
  Company Number: BR-ROCHE-571333

PATIENT
  Sex: Male
  Weight: 82 kg

DRUGS (7)
  1. FUZEON [Suspect]
     Indication: HIV INFECTION
     Dosage: DOSAGE REGIMEN REPORTED AS: 2 TIMES A DAY
     Route: 058
     Dates: start: 20060101
  2. 1 CONCOMITANT DRUG [Concomitant]
     Indication: PAIN
     Dosage: DRUG NAME REPORTED AS: DICLOFENAC SODIUM
     Route: 048
  3. LAMIVUDINE [Concomitant]
     Indication: HIV INFECTION
  4. KALETRA [Concomitant]
     Indication: HIV INFECTION
  5. VIREAD [Concomitant]
     Indication: HIV INFECTION
  6. STOCRIN [Concomitant]
     Indication: HIV INFECTION
  7. BACTRIM [Concomitant]
     Indication: PROPHYLAXIS

REACTIONS (8)
  - BLOOD CHOLESTEROL INCREASED [None]
  - BLOOD TRIGLYCERIDES INCREASED [None]
  - INJECTION SITE ERYTHEMA [None]
  - INJECTION SITE HAEMATOMA [None]
  - INJECTION SITE NODULE [None]
  - INJECTION SITE PAIN [None]
  - INJECTION SITE PRURITUS [None]
  - INJECTION SITE SWELLING [None]
